FAERS Safety Report 4266810-9 (Version None)
Quarter: 2004Q1

REPORT INFORMATION
  Report Type: 
  Country: None (occurrence: None)
  Receive Date: 20040108
  Receipt Date: 20030106
  Transmission Date: 20041129
  Serious: Yes (Hospitalization)
  Sender: FDA-Public Use
  Company Number: US-GLAXOSMITHKLINE-A0390967A

PATIENT
  Age: 41 Year
  Sex: Male

DRUGS (6)
  1. EPIVIR [Suspect]
     Indication: ACQUIRED IMMUNODEFICIENCY SYNDROME
     Route: 048
  2. VIREAD [Suspect]
     Indication: HIV INFECTION
     Route: 065
  3. BACTRIM [Suspect]
     Indication: ILL-DEFINED DISORDER
     Route: 065
  4. DIFLUCAN [Suspect]
     Indication: ILL-DEFINED DISORDER
     Route: 065
  5. VALCYTE [Suspect]
     Indication: ILL-DEFINED DISORDER
     Route: 065
  6. UNKNOWN MEDICATION [Suspect]
     Indication: ILL-DEFINED DISORDER
     Route: 065

REACTIONS (1)
  - DIARRHOEA [None]
